FAERS Safety Report 11229040 (Version 1)
Quarter: 2015Q2

REPORT INFORMATION
  Report Type: Spontaneous
  Country: US (occurrence: US)
  Receive Date: 20150630
  Receipt Date: 20150630
  Transmission Date: 20150821
  Serious: No
  Sender: FDA-Public Use
  Company Number: US-PFIZER INC-2015213069

PATIENT
  Age: 35 Year
  Sex: Female
  Weight: 110 kg

DRUGS (1)
  1. GABAPENTIN. [Suspect]
     Active Substance: GABAPENTIN
     Indication: NEURALGIA
     Dosage: UNK (TOOK UP TO 1500MG, IF NOT MORE, 6 TABLET 300MG A DAY. TOOK TWO IN THE MORNING, TWO IN AFTE)
     Dates: start: 2014, end: 2015

REACTIONS (2)
  - Drug ineffective for unapproved indication [Unknown]
  - Intentional product use issue [Unknown]
